FAERS Safety Report 17440252 (Version 7)
Quarter: 2020Q3

REPORT INFORMATION
  Report Type: Spontaneous
  Country: US (occurrence: US)
  Receive Date: 20200220
  Receipt Date: 20200707
  Transmission Date: 20201102
  Serious: No
  Sender: FDA-Public Use
  Company Number: US-PFIZER INC-2020076416

PATIENT
  Age: 17 Year
  Sex: Female
  Weight: 50 kg

DRUGS (8)
  1. TRAMADOL. [Concomitant]
     Active Substance: TRAMADOL
     Indication: ARTHRALGIA
     Dosage: 50 MG, AS NEEDED (50 MG DAILY PRN (AS NEEDED))
     Dates: start: 2017
  2. LEXAPRO [Concomitant]
     Active Substance: ESCITALOPRAM OXALATE
     Dosage: 10 MG
  3. SPRINTEC [Concomitant]
     Active Substance: ETHINYL ESTRADIOL\NORGESTIMATE
     Dosage: UNK
  4. XELJANZ [Suspect]
     Active Substance: TOFACITINIB CITRATE
     Indication: PSORIATIC ARTHROPATHY
     Dosage: 5 MG, 2X/DAY
     Route: 048
     Dates: start: 20191031, end: 20200218
  5. XELJANZ [Suspect]
     Active Substance: TOFACITINIB CITRATE
     Indication: RHEUMATOID ARTHRITIS
     Dosage: 5 MG, 2X/DAY
     Route: 048
     Dates: start: 201911
  6. IBUPROFEN. [Concomitant]
     Active Substance: IBUPROFEN
     Indication: ARTHRALGIA
     Dosage: 400 MG, AS NEEDED (400 MG TID (THREE TIMES A DAY) PRN (AS NEEDED))
     Dates: start: 2012
  7. XELJANZ [Suspect]
     Active Substance: TOFACITINIB CITRATE
     Indication: JUVENILE PSORIATIC ARTHRITIS
     Dosage: 5 MG, 2X/DAY
     Route: 048
     Dates: start: 202004, end: 202005
  8. CANNABIS [Concomitant]
     Active Substance: CANNABIS SATIVA SUBSP. INDICA TOP
     Indication: ARTHRALGIA
     Dosage: UNK, AS NEEDED (SMOKED DAILY PRN (AS NEEDED))
     Dates: start: 2019

REACTIONS (12)
  - Off label use [Unknown]
  - Depression [Unknown]
  - Drug ineffective [Unknown]
  - Pain [Not Recovered/Not Resolved]
  - Arthralgia [Not Recovered/Not Resolved]
  - Burning sensation [Not Recovered/Not Resolved]
  - Synovitis [Unknown]
  - Joint swelling [Not Recovered/Not Resolved]
  - Localised infection [Unknown]
  - Intentional product misuse [Unknown]
  - Tenosynovitis [Unknown]
  - Product use issue [Unknown]

NARRATIVE: CASE EVENT DATE: 201911
